FAERS Safety Report 19234295 (Version 1)
Quarter: 2021Q2

REPORT INFORMATION
  Report Type: Spontaneous
  Country: US (occurrence: US)
  Receive Date: 20210508
  Receipt Date: 20210508
  Transmission Date: 20210717
  Serious: No
  Sender: FDA-Public Use
  Company Number: US-GLAXOSMITHKLINE-US2021AMR095847

PATIENT
  Sex: Female

DRUGS (1)
  1. BENLYSTA [Suspect]
     Active Substance: BELIMUMAB
     Indication: SYSTEMIC LUPUS ERYTHEMATOSUS
     Dosage: 10 MG/KG 120MG

REACTIONS (6)
  - Hyperhidrosis [Unknown]
  - Hypoaesthesia [Unknown]
  - Malaise [Unknown]
  - Heart rate increased [Unknown]
  - Panic attack [Unknown]
  - Chest pain [Unknown]
